FAERS Safety Report 6587882-2 (Version None)
Quarter: 2010Q1

REPORT INFORMATION
  Report Type: 
  Country: None (occurrence: None)
  Receive Date: 20100218
  Receipt Date: 20100208
  Transmission Date: 20100710
  Serious: Yes (Hospitalization)
  Sender: FDA-Public Use
  Company Number: JP-JNJFOC-20091201453

PATIENT
  Sex: Female
  Weight: 52 kg

DRUGS (6)
  1. DOXORUBICIN HCL [Suspect]
     Indication: OVARIAN CANCER RECURRENT
     Dosage: CYCLE 3
     Route: 042
  2. DOXORUBICIN HCL [Suspect]
     Dosage: CYCLE 1
     Route: 042
  3. DOXORUBICIN HCL [Suspect]
     Dosage: CYCLE 2
     Route: 042
  4. DOXORUBICIN HCL [Suspect]
     Dosage: CYCLE 4
     Route: 042
  5. KYTRIL [Concomitant]
     Indication: PROPHYLAXIS
     Route: 048
  6. AFTACH [Concomitant]
     Route: 048

REACTIONS (1)
  - INTERSTITIAL LUNG DISEASE [None]
